FAERS Safety Report 9096530 (Version 1)
Quarter: 2013Q1

REPORT INFORMATION
  Report Type: Spontaneous
  Country: DE (occurrence: DE)
  Receive Date: 20130211
  Receipt Date: 20130211
  Transmission Date: 20140127
  Serious: Yes (Death)
  Sender: FDA-Public Use
  Company Number: PHHY2013DE012586

PATIENT
  Sex: 0

DRUGS (4)
  1. LEPONEX [Suspect]
     Indication: SCHIZOPHRENIA
     Dosage: 1-0-1-3
     Route: 048
  2. MELPERON [Concomitant]
     Indication: SLEEP DISORDER
     Dosage: 100 MG
  3. RISPERDAL [Concomitant]
     Dosage: 2-0-4-0
     Route: 048
  4. TAVOR (LORAZEPAM) [Concomitant]
     Indication: ANXIETY
     Dosage: 0-0-0-2.5
     Route: 048

REACTIONS (3)
  - Completed suicide [Fatal]
  - Right ventricular failure [Fatal]
  - Intentional overdose [Fatal]
